FAERS Safety Report 17893516 (Version 1)
Quarter: 2020Q2

REPORT INFORMATION
  Report Type: Spontaneous
  Country: US (occurrence: US)
  Receive Date: 20200615
  Receipt Date: 20200615
  Transmission Date: 20200714
  Serious: No
  Sender: FDA-Public Use
  Company Number: US-JNJFOC-20200602028

PATIENT
  Age: 42 Year
  Sex: Female
  Weight: 65.83 kg

DRUGS (2)
  1. TYLENOL 8 HR ARTHRITIS PAIN [Suspect]
     Active Substance: ACETAMINOPHEN
     Indication: PAIN IN EXTREMITY
     Dosage: 2 TABLETS TWICE A DAY, PRODUCT LAST ADMINISTRATION DATE: 24-MAY-2020
     Route: 048
     Dates: start: 202005
  2. TYLENOL 8 HR ARTHRITIS PAIN [Suspect]
     Active Substance: ACETAMINOPHEN
     Indication: PAIN

REACTIONS (2)
  - Inappropriate schedule of product administration [Unknown]
  - Product physical issue [Unknown]

NARRATIVE: CASE EVENT DATE: 202005
